FAERS Safety Report 18034021 (Version 1)
Quarter: 2020Q3

REPORT INFORMATION
  Report Type: Spontaneous
  Country: US (occurrence: US)
  Receive Date: 20200716
  Receipt Date: 20200716
  Transmission Date: 20201103
  Serious: Yes (Other)
  Sender: FDA-Public Use
  Company Number: US-AMERICAN REGENT INC-2020001379

PATIENT
  Age: 61 Year
  Sex: Female

DRUGS (1)
  1. INJECTAFER [Suspect]
     Active Substance: FERRIC CARBOXYMALTOSE
     Indication: ANAEMIA
     Dosage: 1 IN 4 WK
     Route: 042

REACTIONS (2)
  - Stress fracture [Recovered/Resolved]
  - Hypophosphataemic osteomalacia [Recovered/Resolved]
